FAERS Safety Report 7392310-3 (Version None)
Quarter: 2011Q2

REPORT INFORMATION
  Report Type: 
  Country: None (occurrence: None)
  Receive Date: 20110404
  Receipt Date: 20110323
  Transmission Date: 20111010
  Serious: No
  Sender: FDA-Public Use
  Company Number: BR-SANOFI-AVENTIS-2011SA014985

PATIENT
  Age: 62 Year
  Sex: Male
  Weight: 87 kg

DRUGS (15)
  1. LOSARTAN POTASSIUM [Concomitant]
     Indication: BLOOD PRESSURE
     Route: 048
     Dates: start: 20030101
  2. TRAMAL [Concomitant]
  3. LANTUS [Suspect]
     Route: 058
  4. METICORTEN [Suspect]
     Indication: IMMUNOSUPPRESSANT DRUG THERAPY
  5. OMEPRAZOLE [Concomitant]
     Indication: GASTRIC DISORDER
     Route: 048
     Dates: start: 20090701
  6. LANTUS [Suspect]
     Route: 058
  7. ALL OTHER THERAPEUTIC PRODUCTS [Suspect]
     Indication: IMMUNOSUPPRESSANT DRUG THERAPY
     Route: 065
  8. LANTUS [Suspect]
     Route: 058
  9. ATENOLOL [Concomitant]
     Indication: HYPERTENSION
     Route: 048
     Dates: start: 20030101
  10. SIMVASTATIN [Concomitant]
     Route: 048
     Dates: start: 20100801
  11. LANTUS [Suspect]
     Route: 058
  12. LANTUS [Suspect]
     Route: 058
  13. BUSCOPAN [Concomitant]
     Indication: RENAL COLIC
  14. AUTOPEN 24 [Suspect]
  15. PROGRAF [Suspect]
     Indication: IMMUNOSUPPRESSANT DRUG THERAPY
     Route: 048
     Dates: start: 20090701

REACTIONS (2)
  - HEAD DISCOMFORT [None]
  - HYPERGLYCAEMIA [None]
